FAERS Safety Report 14226936 (Version 1)
Quarter: 2017Q4

REPORT INFORMATION
  Report Type: Report from Study
  Country: BR (occurrence: BR)
  Receive Date: 20171127
  Receipt Date: 20171127
  Transmission Date: 20180321
  Serious: Yes (Hospitalization)
  Sender: FDA-Public Use
  Company Number: BR-SA-2015SA206655

PATIENT
  Age: 52 Year
  Sex: Female

DRUGS (1)
  1. LEMTRADA [Suspect]
     Active Substance: ALEMTUZUMAB
     Indication: MULTIPLE SCLEROSIS
     Route: 041
     Dates: start: 20151204, end: 20151208

REACTIONS (20)
  - Dizziness [Unknown]
  - Depression [Unknown]
  - Central nervous system lesion [Unknown]
  - Drug ineffective [Unknown]
  - Pain [Unknown]
  - Fatigue [Unknown]
  - Syncope [Unknown]
  - Headache [Unknown]
  - Pruritus [Unknown]
  - Ill-defined disorder [Unknown]
  - Syncope [Unknown]
  - Chest pain [Recovered/Resolved]
  - Headache [Recovered/Resolved]
  - Diarrhoea [Unknown]
  - Nuclear magnetic resonance imaging abnormal [Unknown]
  - Multiple sclerosis relapse [Unknown]
  - Abdominal pain [Recovered/Resolved]
  - Urticaria [Unknown]
  - Pyrexia [Recovered/Resolved]
  - Emotional disorder [Unknown]

NARRATIVE: CASE EVENT DATE: 20151204
